FAERS Safety Report 5085194-X (Version None)
Quarter: 2006Q3

REPORT INFORMATION
  Report Type: 
  Country: None (occurrence: None)
  Receive Date: 20060817
  Receipt Date: 20060806
  Transmission Date: 20061208
  Serious: Yes (Death, Hospitalization)
  Sender: FDA-Public Use
  Company Number: 2006-146365-NL

PATIENT
  Age: 56 Year
  Sex: Female

DRUGS (8)
  1. MIRTAZAPINE [Suspect]
     Indication: INSOMNIA
     Dosage: 15 MG DAILY, USED AT NIGHT
  2. DULOXETINE [Suspect]
     Indication: DEPRESSION
     Dosage: 30 MG DAILY
  3. DULOXETINE [Suspect]
     Indication: DEPRESSION
     Dosage: 60 MG DAILY
  4. LEVOTHYROXINE SODIUM [Concomitant]
  5. CONTROLLED-RELEASE MORPHINE SULFATE [Concomitant]
  6. LORAZEPAM [Concomitant]
  7. PROMETHAZINE [Concomitant]
  8. HYDROCODONE/ ACETAMINOPHEN (5/500) [Concomitant]

REACTIONS (7)
  - DRUG INTERACTION [None]
  - ENCEPHALOPATHY [None]
  - HEPATIC FAILURE [None]
  - HEPATIC NECROSIS [None]
  - HEPATIC STEATOSIS [None]
  - HEPATIC TRAUMA [None]
  - JAUNDICE CHOLESTATIC [None]
